FAERS Safety Report 9244116 (Version 1)
Quarter: 2013Q1

REPORT INFORMATION
  Report Type: Spontaneous
  Country: US (occurrence: None)
  Receive Date: 20121123
  Receipt Date: 20121123
  Transmission Date: 20140127
  Serious: No
  Sender: FDA-Public Use
  Company Number: 363702

PATIENT
  Age: 51 Year
  Sex: Female

DRUGS (3)
  1. NOVOLOG (INSULIN ASPART (SOLUTION FOR INJECTION, 100U/ML) [Suspect]
     Indication: DIABETES MELLITUS
     Route: 058
  2. VICTOZA (LIRAGLUTIDE) SOLUTION FOR INJECTION, 6MG/ML [Suspect]
     Indication: DIABETES MELLITUS
     Route: 058
  3. LANTUS (INSULIN GLARGINE) [Suspect]
     Indication: DIABETES MELLITUS

REACTIONS (2)
  - Injection site urticaria [None]
  - Injection site rash [None]
